FAERS Safety Report 5348583-1 (Version None)
Quarter: 2007Q2

REPORT INFORMATION
  Report Type: 
  Country: None (occurrence: None)
  Receive Date: 20070605
  Receipt Date: 20070530
  Transmission Date: 20071010
  Serious: Yes (Death, Other)
  Sender: FDA-Public Use
  Company Number: 014018

PATIENT
  Age: 60 Year
  Sex: Female

DRUGS (3)
  1. MEDROXYPROGESTERONE ACETATE [Suspect]
     Dosage: ORAL
     Route: 048
     Dates: start: 19950101, end: 20000101
  2. PREMARIN [Suspect]
     Dosage: ORAL
     Route: 048
     Dates: start: 19950101, end: 20000101
  3. PREMPRO [Suspect]
     Dosage: ORAL
     Route: 048
     Dates: start: 20000101, end: 20030101

REACTIONS (2)
  - ACUTE MYOCARDIAL INFARCTION [None]
  - BREAST CANCER [None]
